FAERS Safety Report 13510574 (Version 2)
Quarter: 2020Q3

REPORT INFORMATION
  Report Type: Report from Study
  Country: NL (occurrence: NL)
  Receive Date: 20170503
  Receipt Date: 20170907
  Transmission Date: 20201105
  Serious: Yes (Other)
  Sender: FDA-Public Use
  Company Number: NL-ASTRAZENECA-2017SE43599

PATIENT
  Age: 70 Year
  Sex: Male
  Weight: 93.7 kg

DRUGS (18)
  1. MEDI4736 [Suspect]
     Active Substance: DURVALUMAB
     Indication: NEOPLASM MALIGNANT
     Route: 042
     Dates: start: 20170523, end: 20170523
  2. MEDI4736 [Suspect]
     Active Substance: DURVALUMAB
     Indication: NEOPLASM MALIGNANT
     Route: 042
     Dates: start: 20170328, end: 20170328
  3. ISOSORBIDE DINITRATE. [Concomitant]
     Active Substance: ISOSORBIDE DINITRATE
     Indication: ANGINA PECTORIS
     Route: 060
     Dates: start: 20161007
  4. TAVOLIXIZUMAB. [Suspect]
     Active Substance: TAVOLIXIZUMAB
     Indication: NEOPLASM MALIGNANT
     Route: 042
     Dates: start: 20170328, end: 20170328
  5. MEDI4736 [Suspect]
     Active Substance: DURVALUMAB
     Indication: NEOPLASM MALIGNANT
     Route: 042
     Dates: start: 20170425, end: 20170425
  6. PARACETAMOL [Concomitant]
     Active Substance: ACETAMINOPHEN
     Indication: ARTHRITIS
     Route: 048
     Dates: start: 20170328
  7. TAVOLIXIZUMAB. [Suspect]
     Active Substance: TAVOLIXIZUMAB
     Indication: NEOPLASM MALIGNANT
     Route: 042
     Dates: start: 20170606, end: 20170606
  8. SIMVASTATIN. [Concomitant]
     Active Substance: SIMVASTATIN
     Indication: PROPHYLAXIS
     Route: 048
     Dates: start: 20161007
  9. LOSARTAN. [Concomitant]
     Active Substance: LOSARTAN
     Indication: HYPERTENSION
     Route: 048
     Dates: start: 20161007
  10. MEDI4736 [Suspect]
     Active Substance: DURVALUMAB
     Indication: NEOPLASM MALIGNANT
     Route: 042
     Dates: start: 20170620, end: 20170620
  11. CARBASALATE CALCIUM [Concomitant]
     Active Substance: CARBASPIRIN CALCIUM
     Indication: THROMBOSIS PROPHYLAXIS
     Route: 048
     Dates: start: 20161007
  12. TAVOLIXIZUMAB. [Suspect]
     Active Substance: TAVOLIXIZUMAB
     Indication: NEOPLASM MALIGNANT
     Route: 042
     Dates: start: 20170411, end: 20170411
  13. TAVOLIXIZUMAB. [Suspect]
     Active Substance: TAVOLIXIZUMAB
     Indication: NEOPLASM MALIGNANT
     Route: 042
     Dates: start: 20170620, end: 20170620
  14. BISOPROLOL [Concomitant]
     Active Substance: BISOPROLOL
     Indication: HYPERTENSION
     Route: 048
     Dates: start: 20161007
  15. TAVOLIXIZUMAB. [Suspect]
     Active Substance: TAVOLIXIZUMAB
     Indication: NEOPLASM MALIGNANT
     Route: 042
     Dates: start: 20170425, end: 20170425
  16. TAVOLIXIZUMAB. [Suspect]
     Active Substance: TAVOLIXIZUMAB
     Indication: NEOPLASM MALIGNANT
     Route: 042
     Dates: start: 20170523, end: 20170523
  17. TAVOLIXIZUMAB. [Suspect]
     Active Substance: TAVOLIXIZUMAB
     Indication: NEOPLASM MALIGNANT
     Route: 042
     Dates: start: 20170509, end: 20170509
  18. TAVOLIXIZUMAB. [Suspect]
     Active Substance: TAVOLIXIZUMAB
     Indication: NEOPLASM MALIGNANT
     Route: 042
     Dates: start: 20170704, end: 20170704

REACTIONS (1)
  - Infusion related reaction [Recovered/Resolved]

NARRATIVE: CASE EVENT DATE: 20170425
